FAERS Safety Report 9479020 (Version 1)
Quarter: 2013Q3

REPORT INFORMATION
  Report Type: Report from Study
  Country: US (occurrence: US)
  Receive Date: 20130827
  Receipt Date: 20130827
  Transmission Date: 20140515
  Serious: Yes (Hospitalization)
  Sender: FDA-Public Use
  Company Number: US-GLAXOSMITHKLINE-A0895849A

PATIENT
  Age: 44 Year
  Sex: Female
  Weight: 56.3 kg

DRUGS (8)
  1. LYMPHOSTAT-B [Suspect]
     Indication: SYSTEMIC LUPUS ERYTHEMATOSUS
     Dosage: 10MGK EVERY 28 DAYS
     Dates: start: 20050926
  2. LYMPHOSTAT-B [Suspect]
     Dates: start: 20050411
  3. LYMPHOSTAT-B [Suspect]
     Dates: start: 20050830
  4. LYMPHOSTAT-B [Suspect]
     Dates: start: 20080701
  5. IRBESARTAN [Concomitant]
  6. ESOMEPRAZOLE [Concomitant]
  7. HYDROXYCHLOROQUINE [Concomitant]
  8. TOPIRAMATE [Concomitant]

REACTIONS (3)
  - Staphylococcal infection [Recovered/Resolved]
  - Cellulitis [Recovered/Resolved]
  - Staphylococcal infection [Recovered/Resolved]
